FAERS Safety Report 23626845 (Version 4)
Quarter: 2024Q3

REPORT INFORMATION
  Report Type: Spontaneous
  Country: CA (occurrence: CA)
  Receive Date: 20240313
  Receipt Date: 20240826
  Transmission Date: 20241017
  Serious: Yes (Death, Other)
  Sender: BRACCO
  Company Number: CA-BRACCO-2024CA01017

PATIENT
  Age: 60 Year
  Sex: Male

DRUGS (7)
  1. SULFUR HEXAFLUORIDE [Suspect]
     Active Substance: SULFUR HEXAFLUORIDE
     Indication: Echocardiogram
     Dosage: 0.5 ML, SINGLE
     Route: 042
     Dates: start: 20240301, end: 20240301
  2. SULFUR HEXAFLUORIDE [Suspect]
     Active Substance: SULFUR HEXAFLUORIDE
     Indication: Echocardiogram
     Dosage: 0.5 ML, SINGLE
     Route: 042
     Dates: start: 20240301, end: 20240301
  3. SULFUR HEXAFLUORIDE [Suspect]
     Active Substance: SULFUR HEXAFLUORIDE
     Indication: Echocardiogram
     Dosage: 0.5 ML, SINGLE
     Route: 042
     Dates: start: 20240301, end: 20240301
  4. SULFUR HEXAFLUORIDE [Suspect]
     Active Substance: SULFUR HEXAFLUORIDE
     Dosage: 0.5 ML, SINGLE
     Route: 042
     Dates: start: 20240301, end: 20240301
  5. SULFUR HEXAFLUORIDE [Suspect]
     Active Substance: SULFUR HEXAFLUORIDE
     Dosage: 0.5 ML, SINGLE
     Route: 042
     Dates: start: 20240301, end: 20240301
  6. SULFUR HEXAFLUORIDE [Suspect]
     Active Substance: SULFUR HEXAFLUORIDE
     Dosage: 0.5 ML, SINGLE
     Route: 042
     Dates: start: 20240301, end: 20240301
  7. ARGATROBAN [Concomitant]
     Active Substance: ARGATROBAN

REACTIONS (4)
  - Anaphylactic reaction [Fatal]
  - Choking [Fatal]
  - Dyspnoea [Fatal]
  - Cardio-respiratory arrest [Fatal]

NARRATIVE: CASE EVENT DATE: 20240301
